FAERS Safety Report 21377145 (Version 1)
Quarter: 2022Q3

REPORT INFORMATION
  Report Type: Spontaneous
  Country: US (occurrence: None)
  Receive Date: 20220925
  Receipt Date: 20220925
  Transmission Date: 20221027
  Serious: Yes (Life-Threatening, Hospitalization)
  Sender: FDA-Public Use
  Company Number: None

PATIENT
  Age: 12 Year
  Sex: Male
  Weight: 40.5 kg

DRUGS (1)
  1. OXCARBAZEPINE [Suspect]
     Active Substance: OXCARBAZEPINE
     Indication: Epilepsy
     Dosage: OTHER QUANTITY : 7 ML;?FREQUENCY : TWICE A DAY;?
     Route: 048
     Dates: start: 20220817, end: 20220902

REACTIONS (2)
  - Stevens-Johnson syndrome [None]
  - Blood pressure increased [None]

NARRATIVE: CASE EVENT DATE: 20220901
